FAERS Safety Report 6207662-7 (Version None)
Quarter: 2009Q2

REPORT INFORMATION
  Report Type: 
  Country: None (occurrence: None)
  Receive Date: 20090528
  Receipt Date: 20090514
  Transmission Date: 20091009
  Serious: Yes (Hospitalization)
  Sender: FDA-Public Use
  Company Number: FI-GENENTECH-283625

PATIENT

DRUGS (1)
  1. MABTHERA [Suspect]
     Indication: BEHCET'S SYNDROME
     Dosage: 500 MG, 4/WEEK
     Route: 042
     Dates: start: 20090101

REACTIONS (1)
  - CYTOMEGALOVIRUS INFECTION [None]
